FAERS Safety Report 11218962 (Version 1)
Quarter: 2015Q2

REPORT INFORMATION
  Report Type: Spontaneous
  Country: US (occurrence: US)
  Receive Date: 20150625
  Receipt Date: 20150625
  Transmission Date: 20150821
  Serious: Yes (Death)
  Sender: FDA-Public Use
  Company Number: US-MEDA-2015010160

PATIENT
  Age: 55 Year
  Sex: Male

DRUGS (7)
  1. MEPROBAMATE. [Suspect]
     Active Substance: MEPROBAMATE
  2. OXYCODONE [Suspect]
     Active Substance: OXYCODONE
  3. ALPRAZOLAM. [Suspect]
     Active Substance: ALPRAZOLAM
  4. DIPHENHYDRAMINE [Suspect]
     Active Substance: DIPHENHYDRAMINE
  5. CLONAZEPAM. [Suspect]
     Active Substance: CLONAZEPAM
  6. COCAINE [Suspect]
     Active Substance: COCAINE
  7. METHADONE [Suspect]
     Active Substance: METHADONE HYDROCHLORIDE

REACTIONS (1)
  - Drug abuse [Fatal]

NARRATIVE: CASE EVENT DATE: 2013
